FAERS Safety Report 8169542-X (Version None)
Quarter: 2012Q1

REPORT INFORMATION
  Report Type: 
  Country: None (occurrence: None)
  Receive Date: 20120228
  Receipt Date: 20120216
  Transmission Date: 20120608
  Serious: Yes (Hospitalization)
  Sender: FDA-Public Use
  Company Number: US-BAYER-2011-110359

PATIENT
  Age: 42 Year
  Sex: Female
  Weight: 74.83 kg

DRUGS (11)
  1. NAPROXEN [Concomitant]
     Dosage: UNK
     Dates: start: 20060101
  2. VITAMINS NOS [Concomitant]
     Dosage: 3000 MG, QD
     Dates: start: 20091123
  3. YAZ [Suspect]
     Dosage: UNK
     Dates: start: 20070101, end: 20090101
  4. IBUPROFEN (ADVIL) [Concomitant]
     Dosage: 800 MG, UNK
     Dates: start: 20060101
  5. AMBIEN CR [Concomitant]
     Indication: INSOMNIA
     Dosage: 10 MG, UNK
     Dates: start: 20070101, end: 20090101
  6. LBS II [Concomitant]
     Dosage: UNK UNK, QD
     Route: 048
  7. ASCORBIC ACID [Concomitant]
     Dosage: UNK UNK, QD
     Route: 048
  8. MOTRIN [Concomitant]
     Indication: MIGRAINE
     Dosage: 800 MG, UNK
     Dates: start: 20060101
  9. CYMBALTA [Concomitant]
     Indication: DEPRESSION
     Dosage: UNK
     Dates: start: 20060101
  10. NAPROXEN (ALEVE) [Concomitant]
     Dosage: UNK
     Dates: start: 20060101
  11. COLLAGEN [Concomitant]
     Dosage: UNK UNK, QD
     Dates: start: 20091123

REACTIONS (3)
  - GALLBLADDER DISORDER [None]
  - CHOLECYSTITIS CHRONIC [None]
  - PAIN [None]
